FAERS Safety Report 5008011-2 (Version None)
Quarter: 2006Q2

REPORT INFORMATION
  Report Type: 
  Country: None (occurrence: None)
  Receive Date: 20060518
  Receipt Date: 20060508
  Transmission Date: 20061013
  Serious: Yes (Other)
  Sender: FDA-Public Use
  Company Number: 2006061023

PATIENT
  Age: 16 Year
  Sex: Male
  Weight: 68 kg

DRUGS (1)
  1. OXYTETRACYCLINE [Suspect]
     Indication: ACNE
     Dosage: 500 MG (500 MG, 1 IN 1 D), ORAL
     Route: 048
     Dates: start: 20060126

REACTIONS (3)
  - LIP BLISTER [None]
  - PAIN [None]
  - SWELLING FACE [None]
